FAERS Safety Report 25627659 (Version 1)
Quarter: 2025Q3

REPORT INFORMATION
  Report Type: Spontaneous
  Country: US (occurrence: US)
  Receive Date: 20250731
  Receipt Date: 20250731
  Transmission Date: 20251020
  Serious: No
  Sender: BIOMARIN
  Company Number: US-BIOMARINAP-US-2025-167690

PATIENT
  Sex: Female

DRUGS (2)
  1. PALYNZIQ [Suspect]
     Active Substance: PEGVALIASE-PQPZ
     Indication: Product used for unknown indication
  2. PALYNZIQ [Suspect]
     Active Substance: PEGVALIASE-PQPZ

REACTIONS (4)
  - Chest pain [Unknown]
  - Rash [Unknown]
  - Fatigue [Unknown]
  - Dyspnoea [Unknown]
